FAERS Safety Report 7362247-4 (Version None)
Quarter: 2011Q1

REPORT INFORMATION
  Report Type: 
  Country: None (occurrence: None)
  Receive Date: 20110318
  Receipt Date: 20110221
  Transmission Date: 20110831
  Serious: No
  Sender: FDA-Public Use
  Company Number: US-B.I. PHARMACEUTICALS,INC./RIDGEFIELD-2011-BP-00540BP

PATIENT
  Sex: Female

DRUGS (8)
  1. LEVOTHYROXINE SODIUM [Concomitant]
     Indication: HYPOTHYROIDISM
     Dosage: 100 MG
  2. ENALAPRIL [Concomitant]
     Indication: HYPERTENSION
     Dosage: 10 MG
     Route: 048
     Dates: start: 20100501, end: 20101201
  3. VERAPAMIL [Suspect]
     Indication: HYPERTENSION
     Dosage: 120 MG
     Route: 048
     Dates: start: 20100501
  4. ADVAIR DISKUS 100/50 [Concomitant]
     Indication: CHRONIC OBSTRUCTIVE PULMONARY DISEASE
  5. AGGRENOX [Suspect]
     Indication: TRANSIENT ISCHAEMIC ATTACK
     Dosage: 50MG/400MG
     Route: 048
     Dates: start: 20100501, end: 20110113
  6. HYDROCHLOROTHIAZIDE [Concomitant]
     Indication: HYPERTENSION
     Dosage: 12.5 MG
     Route: 048
     Dates: start: 20090101
  7. TRAZODONE HCL [Concomitant]
     Indication: ANTIDEPRESSANT THERAPY
     Dosage: 200 MG
  8. ALPRAZOLAM [Concomitant]
     Indication: SLEEP DISORDER
     Dosage: 2 MG

REACTIONS (2)
  - FEELING COLD [None]
  - HYPERHIDROSIS [None]
